FAERS Safety Report 7528040-4 (Version None)
Quarter: 2011Q2

REPORT INFORMATION
  Report Type: 
  Country: None (occurrence: None)
  Receive Date: 20110607
  Receipt Date: 20110602
  Transmission Date: 20111010
  Serious: Yes (Death, Other)
  Sender: FDA-Public Use
  Company Number: US-AMGEN-USASP2011014247

PATIENT
  Sex: Female

DRUGS (1)
  1. NPLATE [Suspect]
     Indication: IDIOPATHIC THROMBOCYTOPENIC PURPURA
     Dosage: 10 A?G/KG, UNK
     Dates: start: 20081009, end: 20090122

REACTIONS (6)
  - PULMONARY FIBROSIS [None]
  - ASCITES [None]
  - THROMBOCYTOPENIA [None]
  - DRUG INEFFECTIVE [None]
  - PLEURAL EFFUSION [None]
  - MULTI-ORGAN FAILURE [None]
